FAERS Safety Report 23832614 (Version 1)
Quarter: 2024Q2

REPORT INFORMATION
  Report Type: Spontaneous
  Country: US (occurrence: US)
  Receive Date: 20240508
  Receipt Date: 20240508
  Transmission Date: 20240716
  Serious: Yes (Other)
  Sender: FDA-Public Use
  Company Number: None

PATIENT
  Age: 68 Year
  Sex: Female

DRUGS (76)
  1. CIPROFLOXACIN [Suspect]
     Active Substance: CIPROFLOXACIN
     Dosage: UNK
  2. DOXYCYCLINE HYCLATE [Suspect]
     Active Substance: DOXYCYCLINE HYCLATE
     Dosage: UNK
  3. ERYTHROMYCIN [Suspect]
     Active Substance: ERYTHROMYCIN
     Dosage: UNK
  4. METHOTREXATE SODIUM [Suspect]
     Active Substance: METHOTREXATE SODIUM
     Dosage: UNK
  5. POTASSIUM CHLORIDE [Suspect]
     Active Substance: POTASSIUM CHLORIDE
     Dosage: UNK
  6. ACTEMRA [Suspect]
     Active Substance: TOCILIZUMAB
     Dosage: UNK
  7. HUMIRA [Suspect]
     Active Substance: ADALIMUMAB
     Dosage: UNK
  8. ISORDIL [Suspect]
     Active Substance: ISOSORBIDE DINITRATE
     Dosage: UNK
  9. ENBREL [Suspect]
     Active Substance: BENZYL ALCOHOL\ETANERCEPT
     Dosage: UNK
  10. RITUXAN [Suspect]
     Active Substance: RITUXIMAB
     Dosage: UNK
  11. LASIX [Suspect]
     Active Substance: FUROSEMIDE
     Dosage: UNK
  12. KEFLEX [Suspect]
     Active Substance: CEPHALEXIN
     Dosage: UNK
  13. SUDAFED [Suspect]
     Active Substance: PSEUDOEPHEDRINE HYDROCHLORIDE
  14. ZENPEP [Suspect]
     Active Substance: PANCRELIPASE AMYLASE\PANCRELIPASE LIPASE\PANCRELIPASE PROTEASE
     Dosage: UNK
  15. GEODON [Suspect]
     Active Substance: ZIPRASIDONE HYDROCHLORIDE\ZIPRASIDONE MESYLATE
     Dosage: UNK
  16. AMPICILLIN [Suspect]
     Active Substance: AMPICILLIN
  17. PROCHLORPERAZINE EDISYLATE [Suspect]
     Active Substance: PROCHLORPERAZINE EDISYLATE
     Dosage: UNK
  18. DIAMOX SEQUELS [Suspect]
     Active Substance: ACETAZOLAMIDE
     Dosage: UNK
  19. TRILEPTAL [Suspect]
     Active Substance: OXCARBAZEPINE
     Dosage: UNK
  20. IRON [Suspect]
     Active Substance: IRON
     Dosage: UNK
  21. CODEINE PHOSPHATE\PSEUDOEPHEDRINE HYDROCHLORIDE\TRIPROLIDINE HYDROCHLO [Suspect]
     Active Substance: CODEINE PHOSPHATE\PSEUDOEPHEDRINE HYDROCHLORIDE\TRIPROLIDINE HYDROCHLORIDE
     Dosage: UNK
  22. CYCLOSPORINE [Suspect]
     Active Substance: CYCLOSPORINE
     Dosage: UNK
  23. DILAUDID [Suspect]
     Active Substance: HYDROMORPHONE HYDROCHLORIDE
     Dosage: UNK
  24. XANAX [Suspect]
     Active Substance: ALPRAZOLAM
     Dosage: 1.5 MG, 1X/DAY
  25. DYAZIDE [Suspect]
     Active Substance: HYDROCHLOROTHIAZIDE\TRIAMTERENE
     Dosage: UNK
  26. ULTRAM [Suspect]
     Active Substance: TRAMADOL HYDROCHLORIDE
     Dosage: UNK
  27. ARAVA [Suspect]
     Active Substance: LEFLUNOMIDE
  28. SIMPONI ARIA [Suspect]
     Active Substance: GOLIMUMAB
  29. LYRICA [Suspect]
     Active Substance: PREGABALIN
     Dosage: 100 MG, QD (BEDTIME))
     Route: 048
  30. ZYRTEC [Suspect]
     Active Substance: CETIRIZINE HYDROCHLORIDE
     Dosage: 10 MG, QD (AS NEEDED))
  31. COLCHICINE [Suspect]
     Active Substance: COLCHICINE
  32. MECLIZINE MONOHYDROCHLORIDE\NIACIN [Suspect]
     Active Substance: MECLIZINE MONOHYDROCHLORIDE\NIACIN
     Indication: Dizziness
     Dosage: UNK
  33. HEPATITIS B VIRUS VACCINE [Suspect]
     Active Substance: HEPATITIS B VIRUS VACCINE
     Dosage: UNK
  34. PLAQUENIL [Suspect]
     Active Substance: HYDROXYCHLOROQUINE SULFATE
     Dosage: UNK
  35. SYSTANE (HYPROMELLOSE 2910 (4000 MPA.S)) [Concomitant]
     Active Substance: HYPROMELLOSE 2910 (4000 MPA.S)
     Dosage: UNK
  36. FOSAMAX [Concomitant]
     Active Substance: ALENDRONATE SODIUM
     Dosage: UNK
  37. CALCIUM CARBONATE [Concomitant]
     Active Substance: CALCIUM CARBONATE
     Dosage: UNK
  38. BUDESONIDE [Concomitant]
     Active Substance: BUDESONIDE
     Dosage: UNK
  39. TYLENOL [Concomitant]
     Active Substance: ACETAMINOPHEN
     Dosage: UNK
  40. NEXIUM [Concomitant]
     Active Substance: ESOMEPRAZOLE MAGNESIUM
     Dosage: UNK
  41. PREDNISOLONE [Concomitant]
     Active Substance: PREDNISOLONE
     Dosage: UNK
  42. FOLIC ACID [Concomitant]
     Active Substance: FOLIC ACID
     Dosage: UNK
  43. RETIN-A [Concomitant]
     Active Substance: TRETINOIN
     Dosage: UNK
  44. PREVACID [Concomitant]
     Active Substance: LANSOPRAZOLE
     Dosage: UNK
  45. PIPERACILLIN SODIUM\TAZOBACTAM SODIUM [Concomitant]
     Active Substance: PIPERACILLIN SODIUM\TAZOBACTAM SODIUM
     Dosage: UNK
  46. ZANTAC [Concomitant]
     Active Substance: RANITIDINE HYDROCHLORIDE
     Dosage: UNK
  47. CARBOXYMETHYLCELLULOSE [Concomitant]
     Active Substance: CARBOXYMETHYLCELLULOSE
     Dosage: UNK
  48. ZANAFLEX [Concomitant]
     Active Substance: TIZANIDINE HYDROCHLORIDE
     Dosage: UNK
  49. ISOPTO TEARS [HYPROMELLOSE] [Concomitant]
     Dosage: UNK
  50. ZADITOR [Concomitant]
     Active Substance: KETOTIFEN FUMARATE
     Dosage: UNK
  51. PNEUMOCOCCAL VACCINE POLYVALENT NOS [Concomitant]
     Active Substance: PNEUMOCOCCAL VACCINE POLYVALENT
     Dosage: UNK
     Dates: start: 20141114, end: 20141114
  52. VITAMIN D3 [Concomitant]
     Active Substance: CHOLECALCIFEROL
     Dosage: UNK
  53. FLEXERIL [Concomitant]
     Active Substance: CYCLOBENZAPRINE HYDROCHLORIDE
  54. SINGULAIR [Concomitant]
     Active Substance: MONTELUKAST SODIUM
  55. VITAMIN D2 [Concomitant]
     Active Substance: ERGOCALCIFEROL
     Dosage: UNK
  56. LAMICTAL [Concomitant]
     Active Substance: LAMOTRIGINE
     Dosage: UNK
  57. PHENERGAN [Concomitant]
     Active Substance: PROMETHAZINE HYDROCHLORIDE
     Dosage: UNK
  58. VICODIN [Concomitant]
     Active Substance: ACETAMINOPHEN\HYDROCODONE BITARTRATE
     Dosage: UNK
  59. SYNTHROID [Concomitant]
     Active Substance: LEVOTHYROXINE SODIUM
     Dosage: UNK
  60. MOBIC [Concomitant]
     Active Substance: MELOXICAM
     Dosage: UNK
  61. MEDIQUE DIAMODE [Concomitant]
     Active Substance: LOPERAMIDE HYDROCHLORIDE
     Dosage: UNK
  62. HYDROCORTISONE [Concomitant]
     Active Substance: HYDROCORTISONE
     Dosage: UNK
  63. TAMIFLU [Concomitant]
     Active Substance: OSELTAMIVIR PHOSPHATE
     Dosage: UNK
  64. RESTASIS [Concomitant]
     Active Substance: CYCLOSPORINE
     Dosage: UNK
  65. ZOLOFT [Concomitant]
     Active Substance: SERTRALINE HYDROCHLORIDE
     Dosage: UNK
  66. VITAMINS [Concomitant]
     Active Substance: VITAMINS
     Dosage: UNK
  67. ZINC [Concomitant]
     Active Substance: PYRITHIONE ZINC\ZINC\ZINC CHLORIDE
  68. PROTOPIC [Concomitant]
     Active Substance: TACROLIMUS
  69. ERGOCALCIFEROL [Concomitant]
     Active Substance: ERGOCALCIFEROL
  70. CYANOCOBALAMIN [Concomitant]
     Active Substance: CYANOCOBALAMIN
  71. CELEXA [Concomitant]
     Active Substance: CITALOPRAM HYDROBROMIDE
     Dosage: UNK
  72. INFLUENZA VIRUS VACCINE [Concomitant]
     Active Substance: INFLUENZA VIRUS VACCINE
     Dosage: UNK
     Dates: start: 20140214, end: 20140214
  73. ADVAIR HFA [Concomitant]
     Active Substance: FLUTICASONE PROPIONATE\SALMETEROL XINAFOATE
     Dosage: UNK
  74. BACTROBAN [Concomitant]
     Active Substance: MUPIROCIN CALCIUM
     Dosage: UNK
  75. VITAMIN B12 [Concomitant]
     Active Substance: CYANOCOBALAMIN
  76. NORCO [Concomitant]
     Active Substance: ACETAMINOPHEN\HYDROCODONE BITARTRATE
     Dosage: UNK
     Dates: start: 20161121

REACTIONS (53)
  - Back pain [Unknown]
  - Joint swelling [Unknown]
  - Myalgia [Unknown]
  - Rheumatoid arthritis [Unknown]
  - Wound [Unknown]
  - Arthritis infective [Unknown]
  - Oedema [Unknown]
  - Tenderness [Unknown]
  - Osteoarthritis [Unknown]
  - Rhinorrhoea [Unknown]
  - Erythema [Unknown]
  - Oral pain [Unknown]
  - Abdominal discomfort [Unknown]
  - Dry skin [Unknown]
  - Diarrhoea [Unknown]
  - Stridor [Unknown]
  - Chills [Unknown]
  - Arthralgia [Unknown]
  - Cognitive disorder [Unknown]
  - Skin warm [Unknown]
  - Dyspnoea [Unknown]
  - Contusion [Unknown]
  - Rash [Unknown]
  - Haemorrhagic diathesis [Unknown]
  - Pain [Unknown]
  - Neck pain [Unknown]
  - Sjogren^s syndrome [Unknown]
  - Anaphylactic reaction [Unknown]
  - Wheezing [Unknown]
  - Hypoaesthesia [Unknown]
  - Vomiting [Unknown]
  - Skin disorder [Unknown]
  - Ear pain [Unknown]
  - Musculoskeletal stiffness [Unknown]
  - Interstitial lung disease [Unknown]
  - Photophobia [Unknown]
  - Drug hypersensitivity [Unknown]
  - Constipation [Unknown]
  - Headache [Unknown]
  - Hypotension [Unknown]
  - Hallucination [Unknown]
  - Visual impairment [Unknown]
  - Asthenia [Unknown]
  - Abdominal pain [Unknown]
  - Appetite disorder [Unknown]
  - Dysphagia [Unknown]
  - Blister [Unknown]
  - Nausea [Unknown]
  - Fatigue [Unknown]
  - Sneezing [Unknown]
  - Dysphoria [Unknown]
  - Gait disturbance [Unknown]
  - Pruritus [Unknown]

NARRATIVE: CASE EVENT DATE: 20110111
